FAERS Safety Report 4955029-1 (Version None)
Quarter: 2006Q1

REPORT INFORMATION
  Report Type: 
  Country: None (occurrence: None)
  Receive Date: 20060322
  Receipt Date: 20060314
  Transmission Date: 20060701
  Serious: Yes (Hospitalization, Other)
  Sender: FDA-Public Use
  Company Number: CHPA2006US02892

PATIENT
  Age: 75 Year
  Sex: Male
  Weight: 93 kg

DRUGS (2)
  1. NICOTINE [Suspect]
     Indication: SMOKING CESSATION THERAPY
     Dosage: 21 MG, QD, TRANSDERMAL
     Route: 062
  2. NICOTINE [Suspect]
     Indication: SMOKING CESSATION THERAPY
     Dosage: 14 MG, QD, TRANSDERMAL
     Route: 062

REACTIONS (6)
  - COAGULOPATHY [None]
  - DRUG TOXICITY [None]
  - HEADACHE [None]
  - INSOMNIA [None]
  - OSTEOMYELITIS [None]
  - PROSTATIC DISORDER [None]
